FAERS Safety Report 23741576 (Version 1)
Quarter: 2024Q2

REPORT INFORMATION
  Report Type: Spontaneous
  Country: CA (occurrence: CA)
  Receive Date: 20240415
  Receipt Date: 20240415
  Transmission Date: 20240716
  Serious: Yes (Other)
  Sender: FDA-Public Use
  Company Number: None

PATIENT
  Age: 34 Year
  Sex: Female

DRUGS (3)
  1. MONOFERRIC [Suspect]
     Active Substance: FERRIC DERISOMALTOSE
     Indication: Iron deficiency
     Route: 050
  2. ATIVAN [Concomitant]
     Active Substance: LORAZEPAM
  3. RIZATRIPTAN [Concomitant]
     Active Substance: RIZATRIPTAN

REACTIONS (7)
  - Chest pain [Unknown]
  - Dysgeusia [Unknown]
  - Haematemesis [Unknown]
  - Malaise [Unknown]
  - Urticaria [Unknown]
  - Vomiting [Unknown]
  - Rash [Unknown]
